FAERS Safety Report 16377959 (Version 1)
Quarter: 2019Q2

REPORT INFORMATION
  Report Type: Spontaneous
  Country: US (occurrence: US)
  Receive Date: 20190531
  Receipt Date: 20190531
  Transmission Date: 20190711
  Serious: Yes (Other)
  Sender: FDA-Public Use
  Company Number: US-AMREGENT-20191075

PATIENT
  Age: 26 Year
  Sex: Female
  Weight: 103 kg

DRUGS (4)
  1. VENOFER [Suspect]
     Active Substance: IRON SUCROSE
     Dosage: 50 MG
     Route: 040
  2. MIRCERA [Suspect]
     Active Substance: METHOXY POLYETHYLENE GLYCOL-EPOETIN BETA
     Dosage: 150 MCG EVERY OTHER WEEK
     Route: 040
     Dates: start: 20160809, end: 20160809
  3. HEPARIN [Concomitant]
     Active Substance: HEPARIN SODIUM
     Dosage: 2000 UX
     Route: 040
  4. HECTOROL [Concomitant]
     Active Substance: DOXERCALCIFEROL
     Dosage: (1 MCG)
     Route: 040

REACTIONS (1)
  - Drug hypersensitivity [Unknown]

NARRATIVE: CASE EVENT DATE: 20160809
